FAERS Safety Report 25520218 (Version 3)
Quarter: 2025Q3

REPORT INFORMATION
  Report Type: Report from Study
  Country: CO (occurrence: CO)
  Receive Date: 20250704
  Receipt Date: 20250924
  Transmission Date: 20251020
  Serious: Yes (Other)
  Sender: TAKEDA
  Company Number: CO-TAKEDA-2025TUS060315

PATIENT
  Age: 47 Year
  Sex: Male
  Weight: 60 kg

DRUGS (3)
  1. ADVATE [Suspect]
     Active Substance: ANTIHEMOPHILIC FACTOR, HUMAN RECOMBINANT
     Indication: Factor VIII deficiency
  2. ADVATE [Suspect]
     Active Substance: ANTIHEMOPHILIC FACTOR, HUMAN RECOMBINANT
     Indication: Prophylaxis
     Dosage: 2000 INTERNATIONAL UNIT, 3/WEEK
     Dates: start: 20250621, end: 20250622
  3. ADVATE [Suspect]
     Active Substance: ANTIHEMOPHILIC FACTOR, HUMAN RECOMBINANT

REACTIONS (11)
  - Haemorrhage [Recovered/Resolved]
  - Haematoma [Recovered/Resolved]
  - Bone swelling [Recovered/Resolved]
  - Pain [Recovered/Resolved]
  - Musculoskeletal chest pain [Recovered/Resolved]
  - Fall [Recovered/Resolved]
  - Hypokinesia [Recovered/Resolved]
  - Rib fracture [Recovered/Resolved]
  - Inflammation [Unknown]
  - Erythema [Unknown]
  - Chest discomfort [Unknown]

NARRATIVE: CASE EVENT DATE: 20250614
